FAERS Safety Report 11062345 (Version 1)
Quarter: 2015Q2

REPORT INFORMATION
  Report Type: Spontaneous
  Country: CA (occurrence: CA)
  Receive Date: 20150424
  Receipt Date: 20150424
  Transmission Date: 20150821
  Serious: Yes (Death, Hospitalization)
  Sender: FDA-Public Use
  Company Number: CA-ROCHE-1566447

PATIENT
  Age: 39 Year
  Sex: Female

DRUGS (9)
  1. OSELTAMIVIR [Suspect]
     Active Substance: OSELTAMIVIR
     Indication: INFLUENZA
     Route: 048
  2. OSELTAMIVIR [Suspect]
     Active Substance: OSELTAMIVIR
     Route: 048
  3. OSELTAMIVIR [Suspect]
     Active Substance: OSELTAMIVIR
     Route: 048
  4. ZANAMIVIR [Suspect]
     Active Substance: ZANAMIVIR
     Indication: INFLUENZA
     Route: 045
  5. CICLOSPORIN [Suspect]
     Active Substance: CYCLOSPORINE
     Indication: IMMUNOSUPPRESSION
     Route: 065
  6. OSELTAMIVIR [Suspect]
     Active Substance: OSELTAMIVIR
     Route: 048
  7. ZANAMIVIR [Suspect]
     Active Substance: ZANAMIVIR
     Indication: PSEUDOMONAS INFECTION
     Route: 042
  8. ALEMTUZUMAB [Concomitant]
     Active Substance: ALEMTUZUMAB
     Indication: PRODUCT USED FOR UNKNOWN INDICATION
  9. MYCOPHENOLATE MOFETIL. [Suspect]
     Active Substance: MYCOPHENOLATE MOFETIL
     Indication: IMMUNOSUPPRESSION
     Route: 065

REACTIONS (15)
  - Cytomegalovirus infection [Fatal]
  - General physical health deterioration [Fatal]
  - Legionella infection [Fatal]
  - Lung infiltration [Fatal]
  - Pseudomonas infection [Fatal]
  - Dyspnoea [Fatal]
  - Graft versus host disease in skin [Fatal]
  - Drug resistance [Fatal]
  - Graft versus host disease in gastrointestinal tract [Fatal]
  - Productive cough [Fatal]
  - Respiratory distress [Fatal]
  - Influenza [Fatal]
  - Rhinorrhoea [Fatal]
  - Cough [Fatal]
  - Cystitis haemorrhagic [Fatal]
